FAERS Safety Report 11516668 (Version 3)
Quarter: 2016Q1

REPORT INFORMATION
  Report Type: Report from Study
  Country: US (occurrence: US)
  Receive Date: 20150917
  Receipt Date: 20160329
  Transmission Date: 20160525
  Serious: No
  Sender: FDA-Public Use
  Company Number: PHEH2015US017517

PATIENT
  Sex: Female

DRUGS (1)
  1. GILENYA [Suspect]
     Active Substance: FINGOLIMOD HYDROCHLORIDE
     Indication: EXPOSURE VIA BODY FLUID
     Dosage: FETAL DRUG EXPOSURE VIA FATHER:0.5 MG, DAILY
     Route: 050

REACTIONS (2)
  - Exposure via partner [Unknown]
  - Twin pregnancy [Unknown]
